FAERS Safety Report 6217008-6 (Version None)
Quarter: 2009Q2

REPORT INFORMATION
  Report Type: 
  Country: None (occurrence: None)
  Receive Date: 20090604
  Receipt Date: 20090520
  Transmission Date: 20091009
  Serious: Yes (Disabling)
  Sender: FDA-Public Use
  Company Number: DSJ-2009-03816

PATIENT
  Age: 75 Year
  Sex: Female
  Weight: 53 kg

DRUGS (3)
  1. OLMESARTAN MEDOXOMIL [Suspect]
     Indication: HYPERTENSION
     Dosage: 20 MG (20 MG, 1 IN 1 D, PER ORAL)
     Route: 048
     Dates: start: 20090117, end: 20090322
  2. CALBLOCK (AZELNIDIPINE) (TABLET) (AZELNIDIPINE) [Suspect]
     Indication: HYPERTENSION
     Dosage: 16 MG 916 MG, 1 IN 1 D) PER ORAL
     Route: 048
     Dates: start: 20090117, end: 20090322
  3. AMLODIPINE [Suspect]
     Indication: HYPERTENSION
     Dosage: 5 MG (5 MG, 1 IN 1 D) PER ORAL
     Route: 048
     Dates: start: 20090117, end: 20090322

REACTIONS (3)
  - GINGIVITIS [None]
  - LOOSE TOOTH [None]
  - TOOTH LOSS [None]
